FAERS Safety Report 4436963-8 (Version None)
Quarter: 2004Q3

REPORT INFORMATION
  Report Type: 
  Country: None (occurrence: None)
  Receive Date: 20040830
  Receipt Date: 20031009
  Transmission Date: 20050211
  Serious: No
  Sender: FDA-Public Use
  Company Number: US-GLAXOSMITHKLINE-A0429674A

PATIENT
  Sex: Female

DRUGS (1)
  1. BECONASE [Suspect]

REACTIONS (1)
  - NAUSEA [None]
